FAERS Safety Report 8964999 (Version 1)
Quarter: 2012Q4

REPORT INFORMATION
  Report Type: Report from Study
  Country: US (occurrence: US)
  Receive Date: 20121214
  Receipt Date: 20121214
  Transmission Date: 20130627
  Serious: Yes (Hospitalization, Other)
  Sender: FDA-Public Use
  Company Number: US-ROCHE-1167063

PATIENT
  Age: 79 Year
  Sex: Female

DRUGS (6)
  1. RANIBIZUMAB [Suspect]
     Indication: AGE-RELATED MACULAR DEGENERATION
     Route: 050
     Dates: start: 20090101
  2. DORZOLAMIDE [Suspect]
     Indication: EYE DISORDER
     Route: 031
  3. FLU VACCINE [Concomitant]
     Indication: ANTIVIRAL PROPHYLAXIS
     Route: 065
  4. COMBIGAN [Concomitant]
     Indication: EYE DISORDER
     Route: 031
  5. TRAVATAN [Concomitant]
     Indication: EYE DISORDER
     Route: 031
  6. OXYGEN [Concomitant]
     Route: 045
     Dates: start: 20121101, end: 20121207

REACTIONS (3)
  - Pneumonia [Unknown]
  - Vision blurred [Unknown]
  - Bronchitis [Unknown]
